FAERS Safety Report 4594791-7 (Version None)
Quarter: 2005Q1

REPORT INFORMATION
  Report Type: 
  Country: None (occurrence: None)
  Receive Date: 20050223
  Receipt Date: 20050208
  Transmission Date: 20050727
  Serious: No
  Sender: FDA-Public Use
  Company Number: 10230

PATIENT
  Age: 36 Year
  Sex: Female

DRUGS (3)
  1. METHOTREXATE [Suspect]
     Indication: RHEUMATOID ARTHRITIS
     Dosage: 20 MG WEEKLY/10 MG WEEKLY
     Dates: start: 20040115, end: 20040419
  2. METHOTREXATE [Suspect]
     Indication: RHEUMATOID ARTHRITIS
     Dosage: 20 MG WEEKLY/10 MG WEEKLY
     Dates: start: 20040420, end: 20040819
  3. SULFASALAZINE [Concomitant]

REACTIONS (2)
  - ABSCESS [None]
  - PHARMACEUTICAL PRODUCT COMPLAINT [None]
